FAERS Safety Report 15067186 (Version 3)
Quarter: 2018Q3

REPORT INFORMATION
  Report Type: Spontaneous
  Country: US (occurrence: US)
  Receive Date: 20180626
  Receipt Date: 20180723
  Transmission Date: 20181010
  Serious: Yes (Other)
  Sender: FDA-Public Use
  Company Number: US-PFIZER INC-2018254821

PATIENT
  Age: 83 Year
  Sex: Female

DRUGS (1)
  1. IBRANCE [Suspect]
     Active Substance: PALBOCICLIB
     Indication: BREAST CANCER FEMALE
     Dosage: 75 MG, CYCLIC

REACTIONS (5)
  - Chronic kidney disease [Unknown]
  - Alopecia [Unknown]
  - Cytopenia [Unknown]
  - Leukopenia [Unknown]
  - Anaemia macrocytic [Unknown]
